FAERS Safety Report 9009674 (Version 2)
Quarter: 2013Q1

REPORT INFORMATION
  Report Type: Spontaneous
  Country: CH (occurrence: CH)
  Receive Date: 20130110
  Receipt Date: 20130212
  Transmission Date: 20140127
  Serious: Yes (Other)
  Sender: FDA-Public Use
  Company Number: CH-PFIZER INC-2013009970

PATIENT
  Age: 63 Year
  Sex: Female
  Weight: 70 kg

DRUGS (5)
  1. ZOLOFT [Suspect]
     Indication: DEPRESSION
     Dosage: 75 MG, 1X/DAY
     Route: 048
     Dates: start: 19980609
  2. ARTICAINE [Interacting]
     Indication: ANAESTHESIA
     Dosage: VIAL, SINGLE
     Dates: start: 20110126, end: 20110126
  3. FEMOSTON CONTI [Concomitant]
     Indication: MENOPAUSAL DISORDER
     Dosage: DYDROGESTERONE 2.5MG/ESTRADIOL 0.5 MG
     Route: 048
     Dates: start: 20070423
  4. TRANXILIUM [Concomitant]
     Indication: INSOMNIA
     Dosage: 0.5 MG, 1X/DAY
     Route: 048
     Dates: start: 20060125
  5. CALCIMAGON-D3 [Concomitant]
     Indication: PROPHYLAXIS
     Dosage: ONE TABLET DAILY
     Route: 048
     Dates: start: 20110222

REACTIONS (6)
  - Convulsion [Recovered/Resolved]
  - Drug interaction [Recovered/Resolved]
  - Serotonin syndrome [Recovered/Resolved]
  - Psychogenic seizure [Recovered/Resolved]
  - Tremor [Recovered/Resolved]
  - Nausea [Recovered/Resolved]
